FAERS Safety Report 10574663 (Version 2)
Quarter: 2014Q4

REPORT INFORMATION
  Report Type: Spontaneous
  Country: FR (occurrence: FR)
  Receive Date: 20141110
  Receipt Date: 20141121
  Transmission Date: 20150529
  Serious: Yes (Hospitalization, Other)
  Sender: FDA-Public Use
  Company Number: FR-PFIZER INC-2014305768

PATIENT
  Age: 45 Year
  Sex: Male

DRUGS (12)
  1. MEDROL [Suspect]
     Active Substance: METHYLPREDNISOLONE
     Dosage: UNK
  2. RIFINAH [Suspect]
     Active Substance: ISONIAZID\RIFAMPIN
     Dosage: 300 MG / 150 MG
     Route: 048
     Dates: start: 20140423
  3. METHOTREXATE (METHOTREXATE SODIUM) [Suspect]
     Active Substance: METHOTREXATE SODIUM
     Dosage: 25 MG, WEEKLY
     Route: 048
     Dates: start: 20140716, end: 201407
  4. TAHOR [Concomitant]
     Active Substance: ATORVASTATIN CALCIUM
     Dosage: 20 MG, 1X/DAY
     Route: 048
     Dates: start: 2013
  5. MEDROL [Suspect]
     Active Substance: METHYLPREDNISOLONE
     Indication: RHEUMATOID ARTHRITIS
     Dosage: 32 MG, 1X/DAY
     Route: 048
     Dates: start: 201301, end: 201311
  6. RIFINAH [Suspect]
     Active Substance: ISONIAZID\RIFAMPIN
     Dosage: 300 MG / 150 MG, 2 DF, 1X/DAY
     Route: 048
     Dates: start: 20140716, end: 20140801
  7. KARDEGIC [Concomitant]
     Active Substance: ASPIRIN LYSINE
     Dosage: 75 MG, 1X/DAY (MIDDAY)
     Route: 048
     Dates: start: 2014
  8. LYRICA [Concomitant]
     Active Substance: PREGABALIN
     Dosage: 75 MG, 2X/DAY
     Route: 048
     Dates: start: 201403
  9. METHOTREXATE (METHOTREXATE SODIUM) [Suspect]
     Active Substance: METHOTREXATE SODIUM
     Indication: RHEUMATOID ARTHRITIS
     Dosage: 20 MG, WEEKLY
     Route: 048
     Dates: start: 201311, end: 201407
  10. BISOCE [Concomitant]
     Active Substance: BISOPROLOL
     Dosage: 2.5 MG, 1X/DAY
     Route: 048
     Dates: start: 2013
  11. MEDROL [Suspect]
     Active Substance: METHYLPREDNISOLONE
     Dosage: 8 MG, DAILY
     Route: 048
     Dates: start: 201311
  12. TRIATEC [Concomitant]
     Active Substance: RAMIPRIL
     Dosage: 1.25 MG, 1X/DAY
     Route: 048
     Dates: start: 2013

REACTIONS (13)
  - Shock haemorrhagic [Unknown]
  - Cholangitis [Unknown]
  - Left ventricular dysfunction [Unknown]
  - Lymphadenopathy [Unknown]
  - Infection [Unknown]
  - Actinomycotic pulmonary infection [Unknown]
  - Duodenal ulcer [Unknown]
  - Anaemia [Unknown]
  - Abdominal pain upper [Unknown]
  - Abdominal injury [Unknown]
  - Rheumatoid arthritis [Unknown]
  - Food aversion [Unknown]
  - Leukocytosis [Unknown]

NARRATIVE: CASE EVENT DATE: 201306
